FAERS Safety Report 5297972-2 (Version None)
Quarter: 2007Q2

REPORT INFORMATION
  Report Type: 
  Country: None (occurrence: None)
  Receive Date: 20070416
  Receipt Date: 20070402
  Transmission Date: 20071010
  Serious: Yes (Hospitalization)
  Sender: FDA-Public Use
  Company Number: US-ELI_LILLY_AND_COMPANY-US200704000474

PATIENT
  Age: 41 Year
  Sex: Male

DRUGS (8)
  1. CYMBALTA [Suspect]
     Dosage: UNK MG, UNK
  2. FENTANYL [Concomitant]
     Indication: BACK PAIN
  3. AMBIEN [Concomitant]
  4. NEURONTIN [Concomitant]
  5. FLEXERIL [Concomitant]
  6. OXYCODONE HCL [Concomitant]
  7. VIAGRA [Concomitant]
  8. AMITRIPTYLINE HCL [Concomitant]

REACTIONS (5)
  - CONFUSIONAL STATE [None]
  - DELIRIUM [None]
  - DRUG INTERACTION [None]
  - DRUG WITHDRAWAL SYNDROME [None]
  - INCOHERENT [None]
